FAERS Safety Report 7398761-5 (Version None)
Quarter: 2011Q2

REPORT INFORMATION
  Report Type: 
  Country: None (occurrence: None)
  Receive Date: 20110401
  Receipt Date: 20110401
  Transmission Date: 20111010
  Serious: Yes (Life-Threatening, Hospitalization)
  Sender: FDA-Public Use
  Company Number: None

PATIENT
  Age: 54 Year
  Sex: Male
  Weight: 106 kg

DRUGS (2)
  1. POTASSIUM CHLORIDE [Suspect]
     Indication: HYPERALDOSTERONISM
     Dosage: 20 MEQ TID  PO
     Route: 048
     Dates: start: 20100609, end: 20110311
  2. SULFAMETHOXAZOLE TRIMETHOPRIM [Suspect]
     Indication: SKIN INFECTION
     Dosage: 2 TAB BID PO
     Route: 048
     Dates: start: 20110223, end: 20110228

REACTIONS (4)
  - BRADYCARDIA [None]
  - HYPERKALAEMIA [None]
  - BLOOD UREA INCREASED [None]
  - BLOOD CREATININE INCREASED [None]
